FAERS Safety Report 5977734-0 (Version None)
Quarter: 2008Q4

REPORT INFORMATION
  Report Type: 
  Country: None (occurrence: None)
  Receive Date: 20081202
  Receipt Date: 20081202
  Transmission Date: 20090506
  Serious: Yes (Other)
  Sender: FDA-Public Use
  Company Number: None

PATIENT
  Age: 61 Year
  Sex: Female
  Weight: 100 kg

DRUGS (19)
  1. TRANEXAMIC ACID PFIZER [Suspect]
     Indication: CARDIAC OPERATION
     Dosage: 30MG/KG X 1 DOSE IV BOLUS
     Route: 040
     Dates: start: 20081022, end: 20081022
  2. ENTOMIDATE [Concomitant]
  3. SUCCINYLCHOLINE CHLORIDE [Concomitant]
  4. ROCURONIUM BROMIDE [Concomitant]
  5. DESFLURANE [Concomitant]
  6. FENTANYL-100 [Concomitant]
  7. CISATRACURIUM [Concomitant]
  8. CEFAZOLIN [Concomitant]
  9. VANCOMYCIN [Concomitant]
  10. MILRINONE [Concomitant]
  11. LIDOCAINE [Concomitant]
  12. CACL [Concomitant]
  13. MAGNESIUM SULFATE [Concomitant]
  14. DOBUTAMINE HCL [Concomitant]
  15. VASSOPRESSIN [Concomitant]
  16. HEPARIN [Concomitant]
  17. PROTAMINE SULFATE [Concomitant]
  18. METHYLPREDNISOLONE 16MG TAB [Concomitant]
  19. INSULIN INFUSION [Concomitant]

REACTIONS (1)
  - PARTIAL SEIZURES [None]
